FAERS Safety Report 21232822 (Version 5)
Quarter: 2022Q4

REPORT INFORMATION
  Report Type: Spontaneous
  Country: IN (occurrence: IN)
  Receive Date: 20220819
  Receipt Date: 20221025
  Transmission Date: 20230113
  Serious: Yes (Hospitalization, Other)
  Sender: FDA-Public Use
  Company Number: IN-PFIZER INC-202101641558

PATIENT
  Age: 41 Year
  Sex: Female

DRUGS (10)
  1. LORLATINIB [Suspect]
     Active Substance: LORLATINIB
     Indication: Lung adenocarcinoma
     Dosage: 100 MG, 1X/DAY
     Route: 048
     Dates: start: 20210826
  2. LORLATINIB [Suspect]
     Active Substance: LORLATINIB
     Dosage: 100 MG, 1X/DAY
     Route: 048
     Dates: start: 20210906
  3. ROSUVASTATIN CALCIUM [Concomitant]
     Active Substance: ROSUVASTATIN CALCIUM
     Dosage: 10 MG, 1X/DAY
  4. MEGEETRON [Concomitant]
     Dosage: 160 MG, 1X/DAY
  5. SHELCAL [CALCIUM CARBONATE;COLECALCIFEROL] [Concomitant]
     Dosage: 1 DF, 1X/DAY
  6. ONDANSETRON HYDROCHLORIDE [Concomitant]
     Active Substance: ONDANSETRON HYDROCHLORIDE
     Indication: Vomiting
     Dosage: 8 MG, AS NEEDED (SOS)
  7. ZOLEDRONIC ACID [Concomitant]
     Active Substance: ZOLEDRONIC ACID
     Dosage: 4 MG (OVER 30 MINS IN 100 ML NS)
  8. SODIUM CHLORIDE [Concomitant]
     Active Substance: SODIUM CHLORIDE
     Dosage: 100 ML (OVER 30 MINS)
  9. RANITIDINE HYDROCHLORIDE [Concomitant]
     Active Substance: RANITIDINE HYDROCHLORIDE
     Indication: Hyperchlorhydria
     Dosage: 150 MG, AS NEEDED (BDAC, IF REQUIRED)
  10. DUPHALAC [Concomitant]
     Active Substance: LACTULOSE
     Indication: Constipation
     Dosage: 20 ML, 1X/DAY (AT BED TIME)

REACTIONS (19)
  - Back pain [Unknown]
  - Neutropenia [Unknown]
  - Diarrhoea [Unknown]
  - Femur fracture [Unknown]
  - Haemoglobin decreased [Not Recovered/Not Resolved]
  - Neutrophil count decreased [Unknown]
  - Heart rate increased [Not Recovered/Not Resolved]
  - Spinal operation [Unknown]
  - Pain [Unknown]
  - Spinal pain [Unknown]
  - Neoplasm progression [Unknown]
  - Arthralgia [Unknown]
  - Pain in extremity [Unknown]
  - Neck pain [Unknown]
  - Headache [Unknown]
  - Haemoptysis [Unknown]
  - Fatigue [Not Recovered/Not Resolved]
  - Groin pain [Unknown]
  - Pain in extremity [Unknown]
